FAERS Safety Report 5375367-0 (Version None)
Quarter: 2007Q2

REPORT INFORMATION
  Report Type: 
  Country: None (occurrence: None)
  Receive Date: 20070629
  Receipt Date: 20070622
  Transmission Date: 20071010
  Serious: Yes (Other)
  Sender: FDA-Public Use
  Company Number: US-PFIZER INC-2006045657

PATIENT
  Sex: Male

DRUGS (2)
  1. GEODON [Suspect]
     Indication: SCHIZOPHRENIA
  2. ZYPREXA [Concomitant]

REACTIONS (11)
  - AMNESIA [None]
  - ANXIETY [None]
  - ASTHENIA [None]
  - BLINDNESS [None]
  - DELIRIUM [None]
  - DEPRESSION [None]
  - DIZZINESS [None]
  - GASTRIC HAEMORRHAGE [None]
  - HYPERTENSION [None]
  - MOOD SWINGS [None]
  - UNEVALUABLE EVENT [None]
